FAERS Safety Report 4436655-5 (Version None)
Quarter: 2004Q3

REPORT INFORMATION
  Report Type: 
  Country: None (occurrence: None)
  Receive Date: 20040830
  Receipt Date: 20040728
  Transmission Date: 20050211
  Serious: No
  Sender: FDA-Public Use
  Company Number: US-BRISTOL-MYERS SQUIBB COMPANY-12654067

PATIENT
  Age: 55 Year
  Sex: Female
  Weight: 57 kg

DRUGS (3)
  1. ABILIFY [Suspect]
     Indication: DEPRESSION
     Dosage: INITIAL DOSAGE UNKNOWN.  RESTARTED ON 10 MG/DAY.
     Route: 048
  2. LEXAPRO [Concomitant]
  3. LEVOXYL [Concomitant]

REACTIONS (3)
  - OEDEMA PERIPHERAL [None]
  - OSTEOARTHRITIS [None]
  - SKIN DISCOLOURATION [None]
